FAERS Safety Report 24665320 (Version 1)
Quarter: 2024Q4

REPORT INFORMATION
  Report Type: Spontaneous
  Country: US (occurrence: US)
  Receive Date: 20241126
  Receipt Date: 20241126
  Transmission Date: 20250114
  Serious: Yes (Other)
  Sender: TERSERA THERAPEUTICS
  Company Number: US-TERSERA THERAPEUTICS LLC-2024TRS005814

PATIENT

DRUGS (11)
  1. ZICONOTIDE [Suspect]
     Active Substance: ZICONOTIDE
     Indication: Complex regional pain syndrome
     Dosage: 0.5 MCG, QD
     Route: 037
  2. ZICONOTIDE [Suspect]
     Active Substance: ZICONOTIDE
     Dosage: 1.5 MCG, QD
     Route: 037
  3. ZICONOTIDE [Suspect]
     Active Substance: ZICONOTIDE
     Dosage: 4.9 MCG, QD
     Route: 037
  4. ZICONOTIDE [Suspect]
     Active Substance: ZICONOTIDE
     Dosage: 6.48 MCG, QD
     Route: 037
  5. ZICONOTIDE [Suspect]
     Active Substance: ZICONOTIDE
     Dosage: 5.9 MCG, QD
     Route: 037
  6. ZICONOTIDE [Suspect]
     Active Substance: ZICONOTIDE
     Dosage: 5.4 MCG, QD
     Route: 037
  7. BUPIVACAINE [Suspect]
     Active Substance: BUPIVACAINE
     Indication: Complex regional pain syndrome
     Dosage: 5 MG, QD
     Route: 037
  8. SUFENTANIL [Suspect]
     Active Substance: SUFENTANIL
     Indication: Complex regional pain syndrome
     Dosage: 7 MCG, QD
     Route: 037
  9. PREGABALIN [Concomitant]
     Active Substance: PREGABALIN
     Indication: Product used for unknown indication
     Dosage: UNK
     Route: 065
  10. OXYCODONE [Concomitant]
     Active Substance: OXYCODONE
     Indication: Product used for unknown indication
     Route: 065
  11. NORTRIPTYLINE [Concomitant]
     Active Substance: NORTRIPTYLINE
     Indication: Product used for unknown indication
     Dosage: UNK
     Route: 065

REACTIONS (7)
  - Erectile dysfunction [Recovered/Resolved]
  - Hallucination [Recovered/Resolved]
  - Mental impairment [Recovered/Resolved]
  - Urinary retention [Recovered/Resolved]
  - Hypoaesthesia [Recovered/Resolved]
  - Product use issue [Unknown]
  - Off label use [Unknown]
